FAERS Safety Report 25811934 (Version 1)
Quarter: 2025Q3

REPORT INFORMATION
  Report Type: Spontaneous
  Country: US (occurrence: US)
  Receive Date: 20250917
  Receipt Date: 20250917
  Transmission Date: 20251021
  Serious: Yes (Other)
  Sender: ALEXION PHARMACEUTICALS
  Company Number: US-AstraZeneca-CH-00950798A

PATIENT

DRUGS (1)
  1. NEXIUM [Suspect]
     Active Substance: ESOMEPRAZOLE MAGNESIUM
     Route: 065

REACTIONS (7)
  - Dyspepsia [Unknown]
  - Drug ineffective [Unknown]
  - Diarrhoea [Unknown]
  - Product dispensing error [Unknown]
  - Quality of life decreased [Unknown]
  - Cerebrovascular accident [Unknown]
  - Tooth loss [Unknown]
